FAERS Safety Report 7381576-1 (Version None)
Quarter: 2011Q1

REPORT INFORMATION
  Report Type: 
  Country: None (occurrence: None)
  Receive Date: 20110329
  Receipt Date: 20101001
  Transmission Date: 20110831
  Serious: Yes (Other)
  Sender: FDA-Public Use
  Company Number: US-BAYER-201018144NA

PATIENT
  Sex: Female
  Weight: 72.562 kg

DRUGS (11)
  1. XANAX [Concomitant]
     Indication: ANXIETY
     Dosage: UNK
     Dates: start: 19960101
  2. PRILOSEC [Concomitant]
     Dosage: UNK
     Dates: start: 20010101
  3. YASMIN [Suspect]
     Dosage: UNK
     Dates: start: 20031030, end: 20031231
  4. NEXIUM [Concomitant]
     Dosage: UNK
     Dates: start: 20020101
  5. ASCORBIC ACID [Concomitant]
  6. GUAIFEN-C [Concomitant]
  7. YASMIN [Suspect]
     Dosage: UNK UNK, UNK
     Route: 048
     Dates: start: 20000101, end: 20040101
  8. PAXIL [Concomitant]
     Indication: ANXIETY
     Dosage: UNK
     Dates: start: 19960101
  9. ZELNORM [Concomitant]
  10. NORETHINDRONE [Concomitant]
     Dosage: 5 MG, UNK
     Dates: start: 20070309
  11. MICROGESTIN 1.5/30 [Concomitant]
     Dosage: UNK
     Dates: start: 20090128, end: 20090626

REACTIONS (6)
  - GALLBLADDER INJURY [None]
  - ABDOMINAL PAIN LOWER [None]
  - BILIARY DYSKINESIA [None]
  - DEEP VEIN THROMBOSIS [None]
  - PAIN IN EXTREMITY [None]
  - HAEMORRHOIDS [None]
